FAERS Safety Report 8298996-3 (Version None)
Quarter: 2012Q2

REPORT INFORMATION
  Report Type: 
  Country: None (occurrence: None)
  Receive Date: 20120419
  Receipt Date: 20120410
  Transmission Date: 20120825
  Serious: Yes (Other)
  Sender: FDA-Public Use
  Company Number: US-ASTRAZENECA-2011SE49506

PATIENT
  Age: 62 Year
  Sex: Female

DRUGS (8)
  1. NEXIUM [Suspect]
     Route: 048
  2. EXCEDRIN (MIGRAINE) [Concomitant]
  3. NAPROXEN (ALEVE) [Concomitant]
  4. ACETAMINOPHEN [Concomitant]
  5. IBUPROFEN (ADVIL) [Concomitant]
  6. MOTRIN [Concomitant]
  7. ASPIRIN [Concomitant]
  8. TYLENOL (CAPLET) [Concomitant]

REACTIONS (16)
  - DYSPEPSIA [None]
  - DEPRESSION [None]
  - EMPHYSEMA [None]
  - BRONCHITIS CHRONIC [None]
  - HYPERTENSION [None]
  - ASTHMA [None]
  - GASTROOESOPHAGEAL REFLUX DISEASE [None]
  - HYPOTHYROIDISM [None]
  - HIV INFECTION [None]
  - GLAUCOMA [None]
  - INTENTIONAL DRUG MISUSE [None]
  - NEOPLASM MALIGNANT [None]
  - CONVULSION [None]
  - ARTHRITIS [None]
  - BLOOD CHOLESTEROL INCREASED [None]
  - DIABETES MELLITUS [None]
